FAERS Safety Report 7241993 (Version 3)
Quarter: 2014Q1

REPORT INFORMATION
  Report Type: Spontaneous
  Country: US (occurrence: None)
  Receive Date: 20091228
  Receipt Date: 20140225
  Transmission Date: 20141002
  Serious: Yes (Death)
  Sender: FDA-Public Use
  Company Number: 2009S1008916

PATIENT
  Age: 64 Year
  Sex: Female
  Weight: 58.97 kg

DRUGS (10)
  1. FLEET PHOSPHO-SODA [Suspect]
     Indication: COLONOSCOPY
     Dosage: 45 ML; ; PO
     Route: 048
     Dates: start: 20080612, end: 20080612
  2. VYTORIN (SIMVASTATIN, EZETIMIBE) (20 MILLIGRAM, TABLET) [Concomitant]
  3. LANTUS SOLOSTAR (INSULIN GLARGINE) [Concomitant]
  4. NOVOLOG (INSULIN ASPART) [Concomitant]
  5. ASPIRIN (ACETYLSALICYLIC ACID) (81 MILLIGRAM, TABLET) [Concomitant]
  6. AVAPRO (IRBESARTAN) [Concomitant]
  7. PRILOSEC (OMEPRAZOLE) [Concomitant]
  8. GLUCAGON EMERGENCY KIT (GLUCAGON) [Concomitant]
  9. FOSAMAX (ALENDRONATE SODIUM) [Concomitant]
  10. SODIUM CHLORIDE (SODIUM CHLORIDE) [Concomitant]

REACTIONS (6)
  - Malaise [None]
  - Nausea [None]
  - Vomiting [None]
  - Blood glucose increased [None]
  - Cardiac arrest [None]
  - Malaise [None]
